FAERS Safety Report 13303943 (Version 1)
Quarter: 2017Q1

REPORT INFORMATION
  Report Type: Not Available
  Country: US (occurrence: US)
  Receive Date: 20170307
  Receipt Date: 20170307
  Transmission Date: 20170428
  Serious: Yes (Other)
  Sender: FDA-Public Use
  Company Number: US--2017-US-000020

PATIENT
  Age: 13 Year
  Sex: Female
  Weight: 61.4 kg

DRUGS (2)
  1. AMLODIPINE BESYLATE BRAND UNSPECIFIED (VIVIMED) [Suspect]
     Active Substance: AMLODIPINE BESYLATE
     Indication: BLOOD PRESSURE INCREASED
     Dosage: 5 MG PER DAY
  2. FUROSEMIDE. [Concomitant]
     Active Substance: FUROSEMIDE
     Indication: DIURETIC THERAPY
     Dosage: 30 MG OF FUROSEMIDE GIVEN INTRAVENOUSLY TWICE
     Route: 042

REACTIONS (1)
  - C3 glomerulopathy [Recovered/Resolved]
